FAERS Safety Report 10445052 (Version 3)
Quarter: 2014Q4

REPORT INFORMATION
  Report Type: Report from Study
  Country: DE (occurrence: DE)
  Receive Date: 20140910
  Receipt Date: 20141226
  Transmission Date: 20150528
  Serious: Yes (Hospitalization, Other)
  Sender: FDA-Public Use
  Company Number: DE-BRISTOL-MYERS SQUIBB COMPANY-20869228

PATIENT
  Age: 72 Year
  Sex: Female

DRUGS (23)
  1. ZANTAC [Concomitant]
     Active Substance: RANITIDINE HYDROCHLORIDE
     Indication: PREMEDICATION
     Dosage: 50 MG, UNK
     Route: 042
     Dates: start: 20140508, end: 20140508
  2. SODIUM CHLORIDE. [Concomitant]
     Active Substance: SODIUM CHLORIDE
     Indication: DIZZINESS
  3. ONDANSETRON [Concomitant]
     Active Substance: ONDANSETRON
     Indication: NAUSEA
     Dosage: 4 MG, QD
     Route: 048
     Dates: start: 20140508
  4. SIMVASTATIN. [Concomitant]
     Active Substance: SIMVASTATIN
     Indication: HYPERLIPIDAEMIA
     Dosage: 20 MG, UNK
     Route: 048
     Dates: start: 2011
  5. MANNITOL. [Concomitant]
     Active Substance: MANNITOL
     Indication: PREMEDICATION
     Dosage: 250 ML, UNK
     Route: 042
     Dates: start: 20140508, end: 20140508
  6. LOPERAMIDE [Concomitant]
     Active Substance: LOPERAMIDE
     Indication: DIARRHOEA
     Dosage: 2 MG, UNK
     Route: 048
     Dates: start: 20140515
  7. BROMAZEPAM [Concomitant]
     Active Substance: BROMAZEPAM
     Indication: DECREASED APPETITE
  8. CARBOPLATIN. [Suspect]
     Active Substance: CARBOPLATIN
     Indication: NON-SMALL CELL LUNG CANCER
     Dosage: DATE OF MOST RECENT DOSE PRIOR TO EVENT: 08MAY14
     Route: 042
     Dates: start: 20140508
  9. AUGMENTIN [Concomitant]
     Active Substance: AMOXICILLIN\CLAVULANATE POTASSIUM
     Indication: C-REACTIVE PROTEIN INCREASED
     Dosage: 1 G, UNK
     Route: 048
     Dates: start: 20140508
  10. SODIUM CHLORIDE. [Concomitant]
     Active Substance: SODIUM CHLORIDE
     Indication: DEHYDRATION
     Dosage: 1000 ML, UNK
     Route: 042
     Dates: start: 20140515, end: 20140515
  11. SODIUM CHLORIDE. [Concomitant]
     Active Substance: SODIUM CHLORIDE
     Indication: HYPONATRAEMIA
  12. DIMENHYDRINATE. [Concomitant]
     Active Substance: DIMENHYDRINATE
     Indication: PROPHYLAXIS
     Dosage: 50MG-ORAL  08MAY2014
     Route: 042
     Dates: start: 20140508
  13. PERENTEROL [Concomitant]
     Active Substance: SACCHAROMYCES CEREVISIAE
     Indication: DIARRHOEA
     Dosage: 250 MG, UNK
     Route: 048
     Dates: start: 20140515
  14. PALONOSETRON [Concomitant]
     Active Substance: PALONOSETRON
     Indication: NAUSEA
     Dosage: INTRAVENOUS  15MAY2014-15MAY2014
     Route: 048
  15. PACLITAXEL. [Suspect]
     Active Substance: PACLITAXEL
     Indication: NON-SMALL CELL LUNG CANCER
     Dosage: 326 MG, UNK
     Route: 042
     Dates: start: 20140508
  16. RAMIPRIL. [Concomitant]
     Active Substance: RAMIPRIL
     Indication: HYPERTENSION
     Dosage: 2.5 MG, UNK
     Route: 048
     Dates: start: 2009
  17. FORTECORTIN [Concomitant]
     Active Substance: DEXAMETHASONE
     Indication: PREMEDICATION
     Dosage: 8 MG, UNK
     Route: 042
     Dates: start: 20140508, end: 20140508
  18. FENISTIL [Concomitant]
     Active Substance: DIMETHINDENE
     Indication: PREMEDICATION
     Dosage: 4 MG, UNK
     Route: 042
     Dates: start: 20140508, end: 20140508
  19. ZOPICLONE [Concomitant]
     Active Substance: ZOPICLONE
     Indication: INSOMNIA
     Route: 048
  20. DIMENHYDRINATE. [Concomitant]
     Active Substance: DIMENHYDRINATE
     Indication: PREMEDICATION
  21. TRAMADOL [Concomitant]
     Active Substance: TRAMADOL
     Indication: PROPHYLAXIS
     Dosage: 20 GTT, UNK
     Route: 048
     Dates: start: 20140508
  22. BISOPROLOL [Concomitant]
     Active Substance: BISOPROLOL
     Indication: HYPERTENSION
     Dosage: 1.25 MG, UNK
     Route: 048
     Dates: start: 2009
  23. ASPIRIN. [Concomitant]
     Active Substance: ASPIRIN
     Indication: PERIPHERAL ARTERIAL OCCLUSIVE DISEASE
     Dosage: 100 MG, UNK
     Route: 048
     Dates: start: 1988

REACTIONS (1)
  - Pneumonia [Recovered/Resolved]

NARRATIVE: CASE EVENT DATE: 20140516
